FAERS Safety Report 8832237 (Version 4)
Quarter: 2013Q1

REPORT INFORMATION
  Report Type: Report from Study
  Country: US (occurrence: US)
  Receive Date: 20121009
  Receipt Date: 20130107
  Transmission Date: 20140127
  Serious: Yes (Other)
  Sender: FDA-Public Use
  Company Number: US-VERTEX PHARMACEUTICAL INC.-2012-021806

PATIENT
  Age: 53 Year
  Sex: Female
  Weight: 63 kg

DRUGS (5)
  1. VX-950 (TELAPREVIR) [Suspect]
     Indication: HEPATITIS C
     Dosage: 750 MG, TID
     Route: 048
     Dates: start: 20120915
  2. PEGASYS [Suspect]
     Indication: HEPATITIS C
     Dosage: 180 ?G, UNK
  3. RIBAVIRIN [Suspect]
     Indication: HEPATITIS C
     Dosage: 200 MG, UNK
     Route: 048
  4. POTASSIUM CHLORIDE [Concomitant]
     Dosage: 100 MEQ CR
     Route: 048
  5. PROMETHAZINE [Concomitant]
     Dosage: 25 MG, UNK
     Route: 048

REACTIONS (20)
  - Red blood cell count decreased [Unknown]
  - Wrong technique in drug usage process [Unknown]
  - Dyspnoea [Unknown]
  - Dehydration [Unknown]
  - Dysstasia [Unknown]
  - Decreased appetite [Unknown]
  - Panic attack [Unknown]
  - Weight decreased [Unknown]
  - Parosmia [Unknown]
  - Foreign body [Unknown]
  - Abdominal discomfort [Unknown]
  - Crying [Unknown]
  - Malaise [Unknown]
  - Feeling abnormal [Unknown]
  - Fatigue [Unknown]
  - Asthenia [Unknown]
  - Dysgeusia [Unknown]
  - Vomiting [Unknown]
  - Nausea [Unknown]
  - Rash pruritic [Unknown]
